FAERS Safety Report 8287816-9 (Version None)
Quarter: 2012Q2

REPORT INFORMATION
  Report Type: 
  Country: None (occurrence: None)
  Receive Date: 20120416
  Receipt Date: 20120404
  Transmission Date: 20120825
  Serious: No
  Sender: FDA-Public Use
  Company Number: US-BAYER-2012-030718

PATIENT
  Age: 66 Year
  Sex: Male
  Weight: 81.633 kg

DRUGS (2)
  1. ALEVE (CAPLET) [Suspect]
     Indication: ARTHRALGIA
     Dosage: 440 MG, PRN
     Route: 048
     Dates: start: 20120101, end: 20120101
  2. TEGRETOL [Concomitant]

REACTIONS (3)
  - EUSTACHIAN TUBE OBSTRUCTION [None]
  - NASAL DRYNESS [None]
  - EAR DISCOMFORT [None]
